FAERS Safety Report 18503201 (Version 2)
Quarter: 2020Q4

REPORT INFORMATION
  Report Type: Report from Study
  Country: HU (occurrence: HU)
  Receive Date: 20201113
  Receipt Date: 20201127
  Transmission Date: 20210114
  Serious: Yes (Other)
  Sender: FDA-Public Use
  Company Number: HU-JNJFOC-20201106429

PATIENT
  Age: 63 Year
  Sex: Female
  Weight: 82 kg

DRUGS (15)
  1. SELEXIPAG [Suspect]
     Active Substance: SELEXIPAG
     Indication: PULMONARY ARTERIAL HYPERTENSION
     Route: 048
     Dates: start: 201907
  2. SELEXIPAG [Suspect]
     Active Substance: SELEXIPAG
     Route: 048
     Dates: start: 202011
  3. VITAMIN D3 [Concomitant]
     Active Substance: CHOLECALCIFEROL
  4. ADCIRCA [Concomitant]
     Active Substance: TADALAFIL
     Dosage: IN THE MORNING 2 TBL
  5. DOXAZOSIN [Concomitant]
     Active Substance: DOXAZOSIN MESYLATE
     Dosage: IN THE MORNING
  6. PROPRANOLOL [Concomitant]
     Active Substance: PROPRANOLOL HYDROCHLORIDE
     Dosage: 2X1
  7. ROSUVASTATIN CALCIUM. [Concomitant]
     Active Substance: ROSUVASTATIN CALCIUM
     Dosage: IN THE EVENING
  8. CANDESARTAN CILEXETIL AND HYDROCHLOROTHIAZIDE [Concomitant]
     Active Substance: CANDESARTAN CILEXETIL\HYDROCHLOROTHIAZIDE
     Dosage: MORNING 8 / 6.25 MG,  DOES NOT TAKE CURRENTLY
  9. LEGALON [Concomitant]
     Active Substance: DIETARY SUPPLEMENT\HERBALS\MILK THISTLE
  10. XARELTO [Concomitant]
     Active Substance: RIVAROXABAN
  11. NOOTROPIL [Concomitant]
     Active Substance: PIRACETAM
  12. KALDYUM [Concomitant]
     Active Substance: POTASSIUM CHLORIDE
  13. FUROSEMID                          /00032601/ [Concomitant]
     Active Substance: FUROSEMIDE
  14. MILURIT [Concomitant]
     Active Substance: ALLOPURINOL
  15. SELEXIPAG [Suspect]
     Active Substance: SELEXIPAG
     Route: 048
     Dates: start: 20201101, end: 20201104

REACTIONS (4)
  - Peripheral swelling [Recovered/Resolved]
  - Dyspnoea [Recovered/Resolved]
  - Headache [Recovered/Resolved]
  - Asthenia [Recovered/Resolved]

NARRATIVE: CASE EVENT DATE: 20201102
